FAERS Safety Report 15275988 (Version 1)
Quarter: 2018Q3

REPORT INFORMATION
  Report Type: Spontaneous
  Country: US (occurrence: US)
  Receive Date: 20180814
  Receipt Date: 20180814
  Transmission Date: 20181010
  Serious: Yes (Death, Hospitalization, Other)
  Sender: FDA-Public Use
  Company Number: PHEH2018US032277

PATIENT
  Age: 4 Year
  Sex: Male
  Weight: 20.7 kg

DRUGS (1)
  1. KYMRIAH [Suspect]
     Active Substance: TISAGENLECLEUCEL
     Indication: ACUTE LYMPHOCYTIC LEUKAEMIA
     Dosage: 3.3X10^6 CAR?T VIABLE T CELLS/KG
     Route: 065
     Dates: start: 20180313

REACTIONS (12)
  - Pupil fixed [Unknown]
  - Coagulopathy [Recovered/Resolved]
  - Haemorrhage intracranial [Fatal]
  - Cytokine release syndrome [Recovered/Resolved]
  - Hypotension [Recovered/Resolved]
  - Tumour lysis syndrome [Unknown]
  - Neurotoxicity [Recovering/Resolving]
  - Hypertension [Fatal]
  - Febrile neutropenia [Unknown]
  - Respiratory failure [Recovering/Resolving]
  - Somnolence [Unknown]
  - Haemolytic anaemia [Unknown]
